FAERS Safety Report 8612291-1 (Version None)
Quarter: 2012Q3

REPORT INFORMATION
  Report Type: 
  Country: None (occurrence: None)
  Receive Date: 20120810
  Receipt Date: 20120810
  Transmission Date: 20120928
  Serious: Yes (Hospitalization)
  Sender: FDA-Public Use
  Company Number: None

PATIENT
  Age: 81 Year
  Sex: Female
  Weight: 67 kg

DRUGS (9)
  1. ASCORBIC ACID [Concomitant]
  2. HYDROCODONE BITARTRATE + ACETAMINOPHEN [Concomitant]
  3. HYDROCHLOROTHIAZIDE [Concomitant]
  4. IRON [Concomitant]
  5. ASPIRIN [Suspect]
     Dosage: 81 MG DAILY PO  PRIOR TO ADMISSION
     Route: 048
  6. POLYETHYLENE GLYCOL [Concomitant]
  7. WARFARIN SODIUM [Suspect]
     Indication: THROMBOSIS PROPHYLAXIS
     Dosage: PER MD BASED ON INR DAILY PO
     Route: 048
     Dates: start: 20111219
  8. GLUCOSAMINE/CHONDROITIN [Concomitant]
  9. CALCIUM + VITAMIN D [Concomitant]

REACTIONS (7)
  - FAECES DISCOLOURED [None]
  - HYPOTENSION [None]
  - HAEMATOCRIT DECREASED [None]
  - UPPER GASTROINTESTINAL HAEMORRHAGE [None]
  - INCISION SITE HAEMORRHAGE [None]
  - RESPIRATORY FAILURE [None]
  - GASTRIC ULCER [None]
